FAERS Safety Report 6678733-6 (Version None)
Quarter: 2010Q2

REPORT INFORMATION
  Report Type: 
  Country: None (occurrence: None)
  Receive Date: 20100408
  Receipt Date: 20100325
  Transmission Date: 20101027
  Serious: Yes (Hospitalization)
  Sender: FDA-Public Use
  Company Number: 2010001056

PATIENT
  Age: 57 Year
  Sex: Female

DRUGS (6)
  1. ERLOTINIB (ERLOTINIB) (TABLET) (ERLOTINIB) [Suspect]
     Indication: NON-SMALL CELL LUNG CANCER
     Dosage: (150 MG, QD), ORAL
     Route: 048
     Dates: start: 20090814, end: 20090909
  2. AZITHROMYCIN [Concomitant]
  3. LEVOFLOXACIN [Concomitant]
  4. LOPERAMIDE HYDROCHLORIDE (LOPRAMIDE HYDROCHLORIDE) [Concomitant]
  5. OMEPRAZOLE [Concomitant]
  6. GRILINCTUS [Concomitant]

REACTIONS (2)
  - GASTROINTESTINAL DISORDER [None]
  - UPPER RESPIRATORY TRACT INFECTION [None]
